FAERS Safety Report 9917036 (Version 1)
Quarter: 2014Q1

REPORT INFORMATION
  Report Type: Report from Study
  Country: US (occurrence: US)
  Receive Date: 20140221
  Receipt Date: 20140221
  Transmission Date: 20141002
  Serious: Yes (Hospitalization)
  Sender: FDA-Public Use
  Company Number: US-GLAXOSMITHKLINE-B0968630A

PATIENT
  Age: 54 Year
  Sex: Female
  Weight: 57.4 kg

DRUGS (3)
  1. MAGE3-AS15 ASCI [Suspect]
     Indication: MALIGNANT MELANOMA
     Route: 030
     Dates: start: 20140106, end: 20140106
  2. ALDESLEUKIN [Suspect]
     Indication: METASTATIC MALIGNANT MELANOMA
     Route: 042
     Dates: start: 20140107, end: 20140107
  3. ONDANSETRON [Suspect]
     Dosage: 8MG FOUR TIMES PER DAY
     Route: 042
     Dates: start: 20140107, end: 20140108

REACTIONS (1)
  - Ventricular tachycardia [Recovered/Resolved]
